FAERS Safety Report 7349919-2 (Version None)
Quarter: 2011Q1

REPORT INFORMATION
  Report Type: 
  Country: None (occurrence: None)
  Receive Date: 20110309
  Receipt Date: 20110309
  Transmission Date: 20110831
  Serious: No
  Sender: FDA-Public Use
  Company Number: None

PATIENT
  Age: 68 Year
  Sex: Male

DRUGS (2)
  1. AUGMENTIN [Suspect]
     Dates: start: 20090505, end: 20090515
  2. AUGMENTIN [Suspect]
     Dates: start: 20091204, end: 20091224

REACTIONS (9)
  - FATIGUE [None]
  - BLOOD BILIRUBIN INCREASED [None]
  - FAECES DISCOLOURED [None]
  - PRURITUS [None]
  - CHROMATURIA [None]
  - ALANINE AMINOTRANSFERASE INCREASED [None]
  - BLOOD ALKALINE PHOSPHATASE INCREASED [None]
  - ASPARTATE AMINOTRANSFERASE INCREASED [None]
  - LIVER INJURY [None]
